FAERS Safety Report 12783130 (Version 1)
Quarter: 2016Q3

REPORT INFORMATION
  Report Type: Spontaneous
  Country: US (occurrence: US)
  Receive Date: 20160927
  Receipt Date: 20160927
  Transmission Date: 20161109
  Serious: Yes (Other)
  Sender: FDA-Public Use
  Company Number: US-BEH-2009020093

PATIENT
  Age: 39 Year
  Sex: Female
  Weight: 68.04 kg

DRUGS (2)
  1. VIVAGLOBIN [Suspect]
     Active Substance: HUMAN IMMUNOGLOBULIN G
     Indication: IMMUNODEFICIENCY COMMON VARIABLE
  2. VIVAGLOBIN [Suspect]
     Active Substance: HUMAN IMMUNOGLOBULIN G
     Indication: HYPOGAMMAGLOBULINAEMIA
     Dosage: 9.6 GRAMS WEEKLY VIA  4 SITES OVER 1.5 HOURS
     Route: 058
     Dates: start: 20090326

REACTIONS (10)
  - Injection site erythema [Recovered/Resolved]
  - Infusion site bruising [Unknown]
  - Infusion site swelling [Recovered/Resolved]
  - Injection site swelling [Recovered/Resolved]
  - Injection site erythema [Recovered/Resolved]
  - Injection site pain [Recovered/Resolved]
  - Headache [Unknown]
  - Injection site pain [Recovered/Resolved]
  - Fatigue [Unknown]
  - Loss of consciousness [Unknown]

NARRATIVE: CASE EVENT DATE: 20090402
